FAERS Safety Report 12614139 (Version 1)
Quarter: 2016Q3

REPORT INFORMATION
  Report Type: Spontaneous
  Country: US (occurrence: None)
  Receive Date: 20160801
  Receipt Date: 20160801
  Transmission Date: 20161109
  Serious: Yes (Other)
  Sender: FDA-Public Use
  Company Number: None

PATIENT
  Age: 10 Year
  Sex: Male
  Weight: 29.03 kg

DRUGS (6)
  1. TRILEPTAL [Suspect]
     Active Substance: OXCARBAZEPINE
     Indication: EPILEPSY
     Route: 048
  2. LEVETIRECETAM [Concomitant]
  3. VITAMIN D [Concomitant]
     Active Substance: CHOLECALCIFEROL
  4. CLARITIN [Concomitant]
     Active Substance: LORATADINE
  5. EPIPEN [Concomitant]
     Active Substance: EPINEPHRINE
  6. BENADRYL [Concomitant]
     Active Substance: DIPHENHYDRAMINE HYDROCHLORIDE

REACTIONS (1)
  - Unevaluable event [None]

NARRATIVE: CASE EVENT DATE: 20130408
